FAERS Safety Report 9666288 (Version 2)
Quarter: 2014Q1

REPORT INFORMATION
  Report Type: Spontaneous
  Country: GB (occurrence: GB)
  Receive Date: 20131104
  Receipt Date: 20140117
  Transmission Date: 20141002
  Serious: Yes (Hospitalization)
  Sender: FDA-Public Use
  Company Number: GB-ABBVIE-13P-167-1165468-00

PATIENT
  Age: 30 Year
  Sex: Female
  Weight: 52 kg

DRUGS (4)
  1. CREON [Suspect]
     Indication: PANCREATIC INSUFFICIENCY
     Dosage: 2-3 TABLETS WITH MEAL
     Route: 048
     Dates: start: 20130902, end: 20130904
  2. CREON [Suspect]
     Dosage: 4 X 25000 CAPSULES PER MAIN MEAL
  3. CREON [Suspect]
     Route: 048
  4. HEPARIN SODIUM [Concomitant]
     Indication: PRODUCT USED FOR UNKNOWN INDICATION
     Dosage: DOSE: 400, UNIT: UNIT(S), DURATION: 14, FREQ: TO FLUSH, REASON: DONE IN HOSPITAL MONTHLY.
     Route: 042

REACTIONS (3)
  - Intentional drug misuse [Unknown]
  - Incorrect dose administered [Unknown]
  - Distal intestinal obstruction syndrome [Recovered/Resolved]
